FAERS Safety Report 12571681 (Version 1)
Quarter: 2016Q3

REPORT INFORMATION
  Report Type: Spontaneous
  Country: SE (occurrence: SE)
  Receive Date: 20160719
  Receipt Date: 20160719
  Transmission Date: 20161109
  Serious: Yes (Other)
  Sender: FDA-Public Use
  Company Number: SE-TEVA-674382ISR

PATIENT
  Age: 87 Year
  Sex: Male

DRUGS (1)
  1. MEMANTINE. [Suspect]
     Active Substance: MEMANTINE
     Route: 048

REACTIONS (4)
  - Coordination abnormal [Unknown]
  - Balance disorder [Unknown]
  - Dysarthria [Unknown]
  - Fatigue [Unknown]
